FAERS Safety Report 12459726 (Version 1)
Quarter: 2016Q2

REPORT INFORMATION
  Report Type: Spontaneous
  Country: US (occurrence: None)
  Receive Date: 20160610
  Receipt Date: 20160610
  Transmission Date: 20160815
  Serious: Yes (Hospitalization)
  Sender: FDA-Public Use
  Company Number: None

PATIENT
  Age: 62 Year
  Sex: Male
  Weight: 81.9 kg

DRUGS (2)
  1. SULFAMETHOXAZOLE/TRIMETHOPRIM [Suspect]
     Active Substance: SULFAMETHOXAZOLE\TRIMETHOPRIM
     Indication: INFECTION
     Route: 048
     Dates: start: 20151130, end: 20151215
  2. SULFAMETHOXAZOLE/TRIMETHOPRIM [Suspect]
     Active Substance: SULFAMETHOXAZOLE\TRIMETHOPRIM
     Indication: URINARY TRACT INFECTION
     Route: 048
     Dates: start: 20151130, end: 20151215

REACTIONS (9)
  - Hemiparesis [None]
  - Asthenia [None]
  - Vomiting [None]
  - Acute kidney injury [None]
  - Nausea [None]
  - Blood potassium increased [None]
  - Feeling abnormal [None]
  - Abdominal pain [None]
  - Thirst [None]

NARRATIVE: CASE EVENT DATE: 20151211
